FAERS Safety Report 8101490-3 (Version None)
Quarter: 2012Q1

REPORT INFORMATION
  Report Type: 
  Country: None (occurrence: None)
  Receive Date: 20120129
  Receipt Date: 20111010
  Transmission Date: 20120608
  Serious: No
  Sender: FDA-Public Use
  Company Number: US-ABBOTT-11P-163-0863098-00

PATIENT
  Age: 12 Year
  Sex: Male

DRUGS (1)
  1. HUMIRA [Suspect]
     Indication: JUVENILE ARTHRITIS
     Dates: start: 20110916

REACTIONS (4)
  - ABDOMINAL PAIN [None]
  - ABDOMINAL DISTENSION [None]
  - MOOD ALTERED [None]
  - DEPRESSION [None]
